FAERS Safety Report 4955788-8 (Version None)
Quarter: 2006Q1

REPORT INFORMATION
  Report Type: 
  Country: None (occurrence: None)
  Receive Date: 20060127
  Receipt Date: 20050209
  Transmission Date: 20060701
  Serious: Yes (Hospitalization)
  Sender: FDA-Public Use
  Company Number: 05-02-0187

PATIENT
  Age: 55 Year
  Sex: Male

DRUGS (3)
  1. CLOZAPINE [Suspect]
     Indication: SCHIZOPHRENIA, PARANOID TYPE
     Dosage: 200 MG QHS, ORAL
     Route: 048
     Dates: start: 20030501, end: 20040901
  2. ZYPREXA [Concomitant]
  3. DEPAKOTE [Concomitant]

REACTIONS (2)
  - DRUG INEFFECTIVE [None]
  - MANIA [None]
